FAERS Safety Report 5256030-3 (Version None)
Quarter: 2007Q1

REPORT INFORMATION
  Report Type: 
  Country: None (occurrence: None)
  Receive Date: 20070301
  Receipt Date: 20070214
  Transmission Date: 20070707
  Serious: Yes (Other)
  Sender: FDA-Public Use
  Company Number: GXKR2007ES01695

PATIENT
  Age: 40 Year
  Sex: Male

DRUGS (3)
  1. IBUPROFEN [Suspect]
     Dosage: ORAL
     Route: 048
  2. PARACETAMOL (NGX) (PARACETAMOL) UNKNOWN [Suspect]
     Dosage: ORAL
     Route: 048
  3. VALERIANA OFFICINALIS ROOT (NGX) (VALERIANA OFFICINALIS ROOT) UNKNOWN [Suspect]
     Dosage: ORAL
     Route: 048

REACTIONS (3)
  - EPSTEIN-BARR VIRUS INFECTION [None]
  - HEPATITIS CHOLESTATIC [None]
  - LYMPHOCYTE MORPHOLOGY ABNORMAL [None]
